FAERS Safety Report 10932989 (Version 2)
Quarter: 2015Q1

REPORT INFORMATION
  Report Type: Report from Study
  Country: DE (occurrence: DE)
  Receive Date: 20150320
  Receipt Date: 20150326
  Transmission Date: 20150721
  Serious: Yes (Life-Threatening, Hospitalization, Other)
  Sender: FDA-Public Use
  Company Number: DE-ACTELION-A-CH2014-105996

PATIENT
  Age: 52 Year
  Sex: Male
  Weight: 56.2 kg

DRUGS (15)
  1. AMBRISENTAN [Concomitant]
     Active Substance: AMBRISENTAN
     Dosage: 10 MG, OD
     Route: 048
     Dates: start: 200401
  2. ALLOPURINOL. [Concomitant]
     Active Substance: ALLOPURINOL
     Dosage: UNK
     Dates: start: 20140106
  3. SILDENAFIL. [Concomitant]
     Active Substance: SILDENAFIL
     Dosage: 120 MG, OD
     Route: 048
     Dates: start: 20130216
  4. PANTOPRAZOLE [Concomitant]
     Active Substance: PANTOPRAZOLE SODIUM
     Dosage: 40 MG, OD
     Route: 048
     Dates: start: 20140929
  5. PHENPROCOUMON [Concomitant]
     Active Substance: PHENPROCOUMON
     Dosage: UNK
     Route: 048
     Dates: start: 200306
  6. AQUAPHOR [Concomitant]
     Active Substance: PETROLATUM
     Dosage: 20 MG, OD
     Route: 048
     Dates: start: 20131029
  7. TORASEMID [Concomitant]
     Active Substance: TORSEMIDE
     Dosage: 15 MG, QD
     Route: 048
     Dates: start: 20140929, end: 20140930
  8. HYPROMELLOSE [Concomitant]
     Active Substance: HYPROMELLOSES
     Dosage: UNK
     Dates: start: 20060220
  9. PANTOPRAZOLE [Concomitant]
     Active Substance: PANTOPRAZOLE SODIUM
     Dosage: 20 MG, OD
     Route: 048
     Dates: start: 20130729
  10. TORASEMID [Concomitant]
     Active Substance: TORSEMIDE
     Dosage: 20 MG, QD
     Route: 048
     Dates: start: 20141001
  11. TORASEMID [Concomitant]
     Active Substance: TORSEMIDE
     Dosage: 5 MG, OD
     Route: 048
     Dates: start: 20140106
  12. ACT-293987 [Suspect]
     Active Substance: SELEXIPAG
     Indication: PULMONARY ARTERIAL HYPERTENSION
     Dosage: 1200 ?G, BID
     Route: 048
     Dates: start: 20140708
  13. VENTAVIS [Suspect]
     Active Substance: ILOPROST
     Indication: PULMONARY ARTERIAL HYPERTENSION
     Dosage: 2.5 NG, Q6HRS
     Route: 055
     Dates: start: 20140929, end: 20141113
  14. SPIRONOLACTON [Concomitant]
     Active Substance: SPIRONOLACTONE
     Dosage: 25 MG, OD
     Route: 048
     Dates: start: 20050603
  15. OXYGEN. [Concomitant]
     Active Substance: OXYGEN
     Dosage: UNK
     Route: 055
     Dates: start: 20090105

REACTIONS (17)
  - Gastritis [Unknown]
  - Right ventricular failure [Recovered/Resolved]
  - Supraventricular tachycardia [Unknown]
  - Insomnia [Unknown]
  - Nausea [Unknown]
  - Ventricular tachycardia [Recovered/Resolved]
  - C-reactive protein increased [Unknown]
  - Constipation [Unknown]
  - Vascular resistance pulmonary increased [Unknown]
  - Transplant evaluation [Recovered/Resolved]
  - Renal failure [Unknown]
  - Pulmonary arterial hypertension [Recovered/Resolved]
  - Oedema peripheral [Recovered/Resolved]
  - General physical health deterioration [Recovered/Resolved]
  - Cough [Unknown]
  - Syncope [Recovered/Resolved with Sequelae]
  - Condition aggravated [Recovered/Resolved]

NARRATIVE: CASE EVENT DATE: 20140929
